FAERS Safety Report 5262683-6 (Version None)
Quarter: 2007Q1

REPORT INFORMATION
  Report Type: 
  Country: None (occurrence: None)
  Receive Date: 20070312
  Receipt Date: 20070228
  Transmission Date: 20070707
  Serious: Yes (Other)
  Sender: FDA-Public Use
  Company Number: US-MERCK-0703USA00035

PATIENT
  Age: 71 Year
  Sex: Male

DRUGS (10)
  1. ZOLINZA [Suspect]
     Indication: MYCOSIS FUNGOIDES
     Route: 048
     Dates: start: 20070212
  2. OXYCODONE [Concomitant]
     Route: 065
  3. TEMAZEPAM [Concomitant]
     Route: 065
  4. HYDROCHLOROTHIAZIDE AND TRIAMTERENE [Concomitant]
     Route: 065
  5. BACTROBAN [Concomitant]
     Route: 065
  6. NORVASC [Concomitant]
     Route: 065
  7. BENTYL [Concomitant]
     Route: 065
  8. XANAX [Concomitant]
     Route: 065
  9. VITAMINS (UNSPECIFIED) [Concomitant]
     Route: 065
  10. VISTARIL [Concomitant]
     Route: 065

REACTIONS (2)
  - MYCOSIS FUNGOIDES [None]
  - PAIN [None]
